FAERS Safety Report 4766423-6 (Version None)
Quarter: 2005Q3

REPORT INFORMATION
  Report Type: 
  Country: None (occurrence: None)
  Receive Date: 20050912
  Receipt Date: 20050831
  Transmission Date: 20060218
  Serious: Yes (Death, Other)
  Sender: FDA-Public Use
  Company Number: IE-BRISTOL-MYERS SQUIBB COMPANY-13096383

PATIENT
  Age: 70 Year
  Sex: Male

DRUGS (36)
  1. FUNGIZONE [Suspect]
     Indication: CANDIDURIA
     Route: 042
     Dates: start: 20050411, end: 20050415
  2. SANDIMMUNE [Suspect]
     Route: 042
  3. MYCOSTATIN [Concomitant]
  4. CORSODYL [Concomitant]
  5. TAZOCIN [Concomitant]
     Route: 042
  6. FLAGYL [Concomitant]
     Route: 042
  7. CIPROXIN [Concomitant]
     Route: 042
  8. VENTOLIN [Concomitant]
     Route: 055
  9. LOSEC [Concomitant]
     Route: 042
  10. ENOXAPARIN SODIUM [Concomitant]
     Route: 058
  11. ATROVENT [Concomitant]
     Route: 055
  12. CARDURA XL [Concomitant]
     Route: 048
  13. CATAPRES [Concomitant]
     Route: 042
  14. SALINE [Concomitant]
     Route: 055
  15. ISTIN [Concomitant]
     Route: 048
  16. DIFLUCAN [Concomitant]
     Route: 042
  17. LONITEN [Concomitant]
     Route: 048
  18. ZYVOX [Concomitant]
     Route: 042
  19. BACTROBAN [Concomitant]
     Route: 061
  20. CHLORHEXIDINE [Concomitant]
     Route: 061
  21. SOLU-CORTEF [Concomitant]
     Route: 042
  22. LANOXIN [Concomitant]
     Route: 048
  23. LANOXIN [Concomitant]
     Route: 042
  24. SUBLIMAZE [Concomitant]
  25. POTASSIUM CHLORIDE [Concomitant]
     Route: 042
     Dates: start: 20050415, end: 20050415
  26. MAGNESIUM SULFATE [Concomitant]
     Route: 042
     Dates: start: 20050415, end: 20050415
  27. PARAMOL-118 [Concomitant]
     Route: 048
  28. PARAMOL-118 [Concomitant]
     Route: 054
  29. ACTRAPID [Concomitant]
     Route: 041
  30. DIPRIVAN [Concomitant]
     Route: 042
  31. MIDAZOLAM HCL [Concomitant]
     Route: 042
  32. TRACRIUM [Concomitant]
     Route: 042
  33. NUTRISON MULTIFIBRE [Concomitant]
     Route: 050
  34. ENSURE PLUS [Concomitant]
     Route: 050
  35. ONE-ALPHA [Concomitant]
     Dates: end: 20050414
  36. ARANESP [Concomitant]
     Route: 058

REACTIONS (10)
  - BLADDER DISCOMFORT [None]
  - DIVERTICULUM [None]
  - HAEMATURIA [None]
  - HYPERTENSION [None]
  - IMMUNE SYSTEM DISORDER [None]
  - PAIN [None]
  - RENAL FAILURE [None]
  - RESPIRATORY DISORDER [None]
  - SEPSIS [None]
  - TACHYCARDIA [None]
